FAERS Safety Report 7183924-4 (Version None)
Quarter: 2010Q4

REPORT INFORMATION
  Report Type: 
  Country: None (occurrence: None)
  Receive Date: 20101210
  Receipt Date: 20101125
  Transmission Date: 20110411
  Serious: Yes (Life-Threatening, Hospitalization)
  Sender: FDA-Public Use
  Company Number: 022792

PATIENT
  Sex: Male

DRUGS (16)
  1. LEVETIRACETAM [Suspect]
     Dosage: 1500 MG, 2000 MG, 1500 MG BID ORAL
     Route: 048
     Dates: start: 20100714, end: 20100701
  2. LEVETIRACETAM [Suspect]
     Dosage: 1500 MG, 2000 MG, 1500 MG BID ORAL
     Route: 048
     Dates: start: 20100716, end: 20100701
  3. LEVETIRACETAM [Suspect]
     Dosage: 1500 MG, 2000 MG, 1500 MG BID ORAL
     Route: 048
     Dates: start: 20000721, end: 20100729
  4. ZOVIRAX [Suspect]
     Indication: MENINGOENCEPHALITIS HERPES SIMPLEX NEONATAL
     Dosage: SEE IMAGE
     Route: 041
     Dates: start: 20100710, end: 20100701
  5. ZOVIRAX [Suspect]
     Indication: MENINGOENCEPHALITIS HERPES SIMPLEX NEONATAL
     Dosage: SEE IMAGE
     Route: 041
     Dates: start: 20100708, end: 20100710
  6. ZOVIRAX [Suspect]
     Indication: MENINGOENCEPHALITIS HERPES SIMPLEX NEONATAL
     Dosage: SEE IMAGE
     Route: 041
     Dates: start: 20100101, end: 20100802
  7. GADOLINIUM (GADOLINIUM) [Suspect]
     Dosage: 1 DF QD INTRAVENOUS DRIP
     Route: 041
     Dates: start: 20100722, end: 20100722
  8. CLAMOXYL /00249601/ (CLAMOXYL) (NOT SPECIFIED) [Suspect]
     Dosage: 2 MG QID INTRAVENOUS DRIP
     Route: 041
     Dates: start: 20100708, end: 20100722
  9. CAFFEINE W/PARACETAMOL/PROPHYPHENAZONE [Concomitant]
  10. PHENYTOIN [Concomitant]
  11. ROCEPHIN [Concomitant]
  12. METAMIZOLE [Concomitant]
  13. FOLIC ACID [Concomitant]
  14. POTASSIUM [Concomitant]
  15. CALCIUM [Concomitant]
  16. VITAMIN D3 [Concomitant]

REACTIONS (3)
  - CONTINUOUS HAEMODIAFILTRATION [None]
  - DRUG INTERACTION [None]
  - RENAL FAILURE ACUTE [None]
